FAERS Safety Report 19780075 (Version 1)
Quarter: 2021Q3

REPORT INFORMATION
  Report Type: Spontaneous
  Country: JP (occurrence: JP)
  Receive Date: 20210902
  Receipt Date: 20210902
  Transmission Date: 20211014
  Serious: Yes (Other)
  Sender: FDA-Public Use
  Company Number: JP-PFIZER INC-202101100884

PATIENT
  Sex: Female

DRUGS (1)
  1. ALDACTONE A [Suspect]
     Active Substance: SPIRONOLACTONE
     Dosage: UNK

REACTIONS (3)
  - Erythema multiforme [Recovered/Resolved]
  - Chondrocalcinosis pyrophosphate [Recovered/Resolved]
  - Drug eruption [Recovered/Resolved]

NARRATIVE: CASE EVENT DATE: 2014
